FAERS Safety Report 7513590-7 (Version None)
Quarter: 2011Q2

REPORT INFORMATION
  Report Type: 
  Country: None (occurrence: None)
  Receive Date: 20110531
  Receipt Date: 20110520
  Transmission Date: 20111010
  Serious: Yes (Other)
  Sender: FDA-Public Use
  Company Number: US-ASTRAZENECA-2011SE31231

PATIENT
  Age: 44 Year
  Sex: Male

DRUGS (15)
  1. CRESTOR [Suspect]
     Indication: DYSLIPIDAEMIA
     Dosage: 40 MG HALF TABLET, AT NIGHT
     Route: 048
  2. HYDRALAZINE HCL [Concomitant]
     Route: 048
  3. BYETTA [Concomitant]
     Dosage: 10 MCG/0.04 ML 10 MCG TWO TIMES A DAY
     Route: 058
  4. BENAZEPRIL HYDROCHLORIDE [Concomitant]
     Route: 048
  5. FUROSEMIDE [Concomitant]
     Route: 048
  6. MAG 125 [Concomitant]
  7. NIACIN [Concomitant]
     Route: 048
  8. METOPROLOL TARTRATE [Concomitant]
     Route: 048
  9. CENTRUM SILVER [Concomitant]
     Route: 048
  10. LANTUS [Concomitant]
     Dosage: 100 UNITS/ ML 20 UNITS SUBCUTANEOUSLY ONCE A DAY AT BED TIME
     Route: 058
  11. GLIPIZIDE [Concomitant]
  12. LOVAZA [Concomitant]
     Dosage: 1200, 4 TABLETS TWICE A DAY
  13. ASPIRIN [Concomitant]
  14. BENAZEPRIL HYDROCHLORIDE [Concomitant]
     Route: 048
  15. CARVEDILOL [Concomitant]
     Route: 048

REACTIONS (4)
  - DIABETIC NEPHROPATHY [None]
  - RENAL FAILURE CHRONIC [None]
  - PROTEINURIA [None]
  - HYPERTENSION [None]
